FAERS Safety Report 4588771-5 (Version None)
Quarter: 2005Q1

REPORT INFORMATION
  Report Type: 
  Country: None (occurrence: None)
  Receive Date: 20050222
  Receipt Date: 20050104
  Transmission Date: 20050727
  Serious: Yes (Hospitalization)
  Sender: FDA-Public Use
  Company Number: PHBS2005BR00467

PATIENT
  Age: 50 Year
  Sex: Female

DRUGS (1)
  1. CATAFLAM [Suspect]
     Dosage: 75 MG EVERY 10 DAYS
     Route: 030

REACTIONS (7)
  - INJECTION SITE ERYTHEMA [None]
  - INJECTION SITE INDURATION [None]
  - INJECTION SITE INFLAMMATION [None]
  - INJECTION SITE NECROSIS [None]
  - INJECTION SITE NODULE [None]
  - INJECTION SITE PAIN [None]
  - SKIN OPERATION [None]
